FAERS Safety Report 14596837 (Version 2)
Quarter: 2018Q1

REPORT INFORMATION
  Report Type: Report from Study
  Country: None (occurrence: US)
  Receive Date: 20180304
  Receipt Date: 20180309
  Transmission Date: 20180509
  Serious: Yes (Hospitalization, Other)
  Sender: FDA-Public Use
  Company Number: US-ABBVIE-17K-163-1970713-00

PATIENT
  Age: 53 Year
  Sex: Male
  Weight: 145.28 kg

DRUGS (3)
  1. HUMIRA [Suspect]
     Active Substance: ADALIMUMAB
     Indication: PSORIASIS
     Route: 058
     Dates: start: 2014, end: 201712
  2. LEVOTHYROXINE. [Concomitant]
     Active Substance: LEVOTHYROXINE
     Indication: PRODUCT USED FOR UNKNOWN INDICATION
  3. LOSARTAN. [Concomitant]
     Active Substance: LOSARTAN
     Indication: PRODUCT USED FOR UNKNOWN INDICATION

REACTIONS (10)
  - Psoriasis [Not Recovered/Not Resolved]
  - Escherichia infection [Recovered/Resolved]
  - Loss of consciousness [Recovered/Resolved]
  - Chills [Recovered/Resolved]
  - Escherichia urinary tract infection [Recovered/Resolved]
  - Communication disorder [Recovered/Resolved]
  - Intestinal cyst [Recovered/Resolved]
  - Diabetes mellitus [Recovering/Resolving]
  - Sepsis [Recovered/Resolved]
  - Pyrexia [Recovered/Resolved]

NARRATIVE: CASE EVENT DATE: 201602
